FAERS Safety Report 5358645-0 (Version None)
Quarter: 2007Q2

REPORT INFORMATION
  Report Type: 
  Country: None (occurrence: None)
  Receive Date: 20070614
  Receipt Date: 20070614
  Transmission Date: 20071010
  Serious: Yes (Other)
  Sender: FDA-Public Use
  Company Number: None

PATIENT
  Sex: Male

DRUGS (14)
  1. REVLIMID [Suspect]
     Indication: MULTIPLE MYELOMA
     Dosage: 25 MG DAILY X21D/28D PO
     Route: 048
     Dates: start: 20070411
  2. DEXAMETHASONE 0.5MG TAB [Concomitant]
  3. LYRICA [Concomitant]
  4. COLESTID [Concomitant]
  5. LOVASTATIN [Concomitant]
  6. LISINOPRIL [Concomitant]
  7. ATENOLOL [Concomitant]
  8. NOVOLIN R [Concomitant]
  9. GLIPIZIDE [Concomitant]
  10. FOSAMAX PLUS D [Concomitant]
  11. OMEPRAZOLE [Concomitant]
  12. ASPIRIN [Concomitant]
  13. GABAPENTIN [Concomitant]
  14. TRAZODONE HCL [Concomitant]

REACTIONS (4)
  - CONDITION AGGRAVATED [None]
  - EXERCISE TOLERANCE DECREASED [None]
  - FATIGUE [None]
  - TINNITUS [None]
